FAERS Safety Report 12631682 (Version 2)
Quarter: 2016Q3

REPORT INFORMATION
  Report Type: Spontaneous
  Country: US (occurrence: US)
  Receive Date: 20160808
  Receipt Date: 20160808
  Transmission Date: 20161109
  Serious: No
  Sender: FDA-Public Use
  Company Number: US-BEH-2015055327

PATIENT
  Sex: Female
  Weight: 85 kg

DRUGS (32)
  1. HIZENTRA [Suspect]
     Active Substance: HUMAN IMMUNOGLOBULIN G
     Indication: IMMUNODEFICIENCY COMMON VARIABLE
     Dosage: ONGOING
     Route: 058
  2. DIPHENHYDRAMINE. [Concomitant]
     Active Substance: DIPHENHYDRAMINE
  3. OXYGEN. [Concomitant]
     Active Substance: OXYGEN
  4. FLUTICASONE [Concomitant]
     Active Substance: FLUTICASONE\FLUTICASONE PROPIONATE
  5. ETODOLAC. [Concomitant]
     Active Substance: ETODOLAC
  6. FENOFIBRATE. [Concomitant]
     Active Substance: FENOFIBRATE
  7. RANITIDINE. [Concomitant]
     Active Substance: RANITIDINE
  8. BENZONATATE. [Concomitant]
     Active Substance: BENZONATATE
  9. LMX [Concomitant]
     Active Substance: LIDOCAINE
  10. BUDESONIDE. [Concomitant]
     Active Substance: BUDESONIDE
  11. OMEPRAZOLE. [Concomitant]
     Active Substance: OMEPRAZOLE
  12. ALBUTEROL. [Concomitant]
     Active Substance: ALBUTEROL
  13. HIZENTRA [Suspect]
     Active Substance: HUMAN IMMUNOGLOBULIN G
  14. PREDNISONE. [Concomitant]
     Active Substance: PREDNISONE
  15. LANTUS [Concomitant]
     Active Substance: INSULIN GLARGINE
  16. LEVAQUIN [Concomitant]
     Active Substance: LEVOFLOXACIN
  17. ALL OTHER THERAPEUTIC PRODUCTS [Concomitant]
     Active Substance: UNSPECIFIED INGREDIENT
  18. GRAPE SEED [Concomitant]
  19. METHOCARBAMOL. [Concomitant]
     Active Substance: METHOCARBAMOL
  20. CIPRO [Concomitant]
     Active Substance: CIPROFLOXACIN HYDROCHLORIDE
  21. AMBIEN [Concomitant]
     Active Substance: ZOLPIDEM TARTRATE
  22. OMEGA3 FISH OIL [Concomitant]
  23. EPIPEN [Concomitant]
     Active Substance: EPINEPHRINE
  24. LISINOPRIL. [Concomitant]
     Active Substance: LISINOPRIL
  25. HYDROCODONE-ACETAMINOPHEN [Concomitant]
     Active Substance: ACETAMINOPHEN\HYDROCODONE
  26. MUCINEX [Concomitant]
     Active Substance: GUAIFENESIN
  27. HIZENTRA [Suspect]
     Active Substance: HUMAN IMMUNOGLOBULIN G
     Indication: IMMUNODEFICIENCY COMMON VARIABLE
  28. AZELASTINE [Concomitant]
     Active Substance: AZELASTINE
  29. SINGULAIR [Concomitant]
     Active Substance: MONTELUKAST SODIUM
  30. ORAL ANTIDIABETICS [Concomitant]
     Active Substance: UNSPECIFIED INGREDIENT
  31. LYRICA [Concomitant]
     Active Substance: PREGABALIN
  32. POTASSIUM [Concomitant]
     Active Substance: POTASSIUM

REACTIONS (1)
  - Upper respiratory tract infection [Unknown]
